FAERS Safety Report 6633440-0 (Version None)
Quarter: 2010Q1

REPORT INFORMATION
  Report Type: 
  Country: None (occurrence: None)
  Receive Date: 20100312
  Receipt Date: 20090316
  Transmission Date: 20100710
  Serious: No
  Sender: FDA-Public Use
  Company Number: US-ABBOTT-09P-163-0563339-00

PATIENT
  Age: 35 Year
  Sex: Female

DRUGS (1)
  1. ERYTHROMYCIN [Suspect]
     Indication: INFECTION
     Dosage: UNKNOWN DOSE
     Dates: start: 20030101, end: 20030101

REACTIONS (3)
  - DIZZINESS [None]
  - PRURITUS [None]
  - PYREXIA [None]
